FAERS Safety Report 23514961 (Version 1)
Quarter: 2024Q1

REPORT INFORMATION
  Report Type: Spontaneous
  Country: US (occurrence: US)
  Receive Date: 20240212
  Receipt Date: 20240212
  Transmission Date: 20240409
  Serious: No
  Sender: FDA-Public Use
  Company Number: US-SA-SAC20240207001202

PATIENT
  Age: 44 Year
  Sex: Male

DRUGS (1)
  1. REZUROCK [Suspect]
     Active Substance: BELUMOSUDIL
     Indication: Graft versus host disease in skin
     Dosage: 200 MG, QD
     Route: 048
     Dates: start: 20231102

REACTIONS (1)
  - Liver disorder [Unknown]
